FAERS Safety Report 25939184 (Version 1)
Quarter: 2025Q4

REPORT INFORMATION
  Report Type: Spontaneous
  Country: EU (occurrence: EU)
  Receive Date: 20251020
  Receipt Date: 20251020
  Transmission Date: 20260118
  Serious: Yes (Hospitalization)
  Sender: ABBVIE
  Company Number: EU-ABBVIE-6503298

PATIENT
  Age: 78 Year
  Sex: Male

DRUGS (6)
  1. VENETOCLAX [Suspect]
     Active Substance: VENETOCLAX
     Indication: Acute myeloid leukaemia
     Route: 048
  2. ACYCLOVIR [Concomitant]
     Active Substance: ACYCLOVIR
     Indication: Product used for unknown indication
  3. COTRIMOXAZOLE [Concomitant]
     Active Substance: SULFAMETHOXAZOLE\TRIMETHOPRIM
     Indication: Product used for unknown indication
  4. AZACITIDINE [Concomitant]
     Active Substance: AZACITIDINE
     Indication: Product used for unknown indication
     Dosage: (140 MG/DAY-7 DAYS)
  5. FILGRASTIM [Concomitant]
     Active Substance: FILGRASTIM
     Indication: Product used for unknown indication
     Dosage: 2/PER DAY + 3 U MER
  6. FILGRASTIM [Concomitant]
     Active Substance: FILGRASTIM
     Indication: Product used for unknown indication
     Dosage: 1 VIAL TWICE A WEEK (MONDAY AND THURSDAY)
     Route: 058

REACTIONS (7)
  - Syncope [Unknown]
  - Hypotension [Unknown]
  - Pallor [Unknown]
  - Asthenia [Unknown]
  - Vertigo [Unknown]
  - Dehydration [Unknown]
  - Hospitalisation [Recovered/Resolved]

NARRATIVE: CASE EVENT DATE: 20230601
